FAERS Safety Report 6474926-1 (Version None)
Quarter: 2009Q4

REPORT INFORMATION
  Report Type: 
  Country: None (occurrence: None)
  Receive Date: 20091204
  Receipt Date: 20091123
  Transmission Date: 20100525
  Serious: Yes (Other)
  Sender: FDA-Public Use
  Company Number: US-WATSON-2009-10064

PATIENT

DRUGS (6)
  1. ANDRODERM [Suspect]
     Indication: HYPOGONADISM MALE
     Dosage: 5 MG, Q 72 HOURS
     Route: 062
     Dates: start: 20061024
  2. AXITINIB [Suspect]
     Indication: METASTATIC RENAL CELL CARCINOMA
     Dosage: 5 MG, 2X/DAY
     Route: 048
     Dates: start: 20081002, end: 20090901
  3. MEGACE [Suspect]
     Indication: DECREASED APPETITE
     Dosage: 40 MG, 4X/DAY
     Route: 048
     Dates: start: 20080813
  4. FENOFIBRATE [Concomitant]
     Indication: DRUG USE FOR UNKNOWN INDICATION
     Dosage: UNK
     Route: 048
     Dates: start: 20080104
  5. MICARDIS HCT [Concomitant]
     Indication: DRUG USE FOR UNKNOWN INDICATION
     Dosage: UNK
     Route: 048
     Dates: start: 20080130
  6. LEVOTHYROXINE SODIUM [Concomitant]
     Indication: DRUG USE FOR UNKNOWN INDICATION
     Dosage: UNK
     Route: 048
     Dates: start: 20061024

REACTIONS (1)
  - PULMONARY EMBOLISM [None]
